FAERS Safety Report 8212884-X (Version None)
Quarter: 2012Q1

REPORT INFORMATION
  Report Type: 
  Country: None (occurrence: None)
  Receive Date: 20120315
  Receipt Date: 20120312
  Transmission Date: 20120608
  Serious: Yes (Hospitalization)
  Sender: FDA-Public Use
  Company Number: US-TEVA-327754USA

PATIENT
  Age: 55 Year
  Sex: Female

DRUGS (4)
  1. GEMCITABINE [Suspect]
  2. GEMCITABINE [Suspect]
     Indication: ADENOCARCINOMA PANCREAS
  3. DOCETAXEL [Suspect]
     Indication: ADENOCARCINOMA PANCREAS
  4. CAPECITABINE [Suspect]
     Indication: ADENOCARCINOMA PANCREAS

REACTIONS (7)
  - HYPOREFLEXIA [None]
  - MYOSITIS [None]
  - GAIT DISTURBANCE [None]
  - AREFLEXIA [None]
  - PAIN IN EXTREMITY [None]
  - MUSCULAR WEAKNESS [None]
  - MUSCLE ATROPHY [None]
